FAERS Safety Report 10198042 (Version 1)
Quarter: 2014Q2

REPORT INFORMATION
  Report Type: Spontaneous
  Country: IT (occurrence: IT)
  Receive Date: 20140527
  Receipt Date: 20140527
  Transmission Date: 20141212
  Serious: Yes (Other)
  Sender: FDA-Public Use
  Company Number: 2014SP002862

PATIENT
  Age: 70 Year
  Sex: Female

DRUGS (3)
  1. ARACYTIN [Suspect]
     Route: 042
     Dates: start: 20140325
  2. CISPLATIN [Suspect]
     Route: 042
     Dates: start: 20140320, end: 20140324
  3. ETOPOSIDE [Suspect]
     Route: 042
     Dates: start: 20140320

REACTIONS (3)
  - Disease progression [Unknown]
  - Disease progression [Unknown]
  - Thrombocytopenia [Recovering/Resolving]
